FAERS Safety Report 11161263 (Version 2)
Quarter: 2015Q2

REPORT INFORMATION
  Report Type: Spontaneous
  Country: US (occurrence: US)
  Receive Date: 20150604
  Receipt Date: 20150604
  Transmission Date: 20150821
  Serious: No
  Sender: FDA-Public Use
  Company Number: US-SA-2014SA096854

PATIENT
  Age: 65 Year
  Sex: Male

DRUGS (3)
  1. LANTUS SOLOSTAR [Suspect]
     Active Substance: INSULIN GLARGINE
     Indication: LATENT AUTOIMMUNE DIABETES IN ADULTS
     Dosage: DOSE- 27/28 UNITS
     Route: 065
     Dates: start: 2013
  2. SOLOSTAR [Concomitant]
     Active Substance: DEVICE
     Route: 065
     Dates: start: 2013
  3. LANTUS SOLOSTAR [Suspect]
     Active Substance: INSULIN GLARGINE
     Indication: TYPE 1 DIABETES MELLITUS
     Dosage: DOSE- 27/28 UNITS
     Route: 065
     Dates: start: 2013

REACTIONS (1)
  - Blood glucose abnormal [Recovered/Resolved]
